FAERS Safety Report 12085828 (Version 1)
Quarter: 2016Q1

REPORT INFORMATION
  Report Type: Spontaneous
  Country: US (occurrence: US)
  Receive Date: 20160217
  Receipt Date: 20160217
  Transmission Date: 20160526
  Serious: No
  Sender: FDA-Public Use
  Company Number: US-TAKEDA-2015TUS000948

PATIENT
  Age: 22 Year
  Sex: Female

DRUGS (2)
  1. PREVACID [Suspect]
     Active Substance: LANSOPRAZOLE
     Indication: GASTROOESOPHAGEAL REFLUX DISEASE
     Dosage: 4 DF, QD
     Route: 048
  2. SOLUTAB [Concomitant]
     Dosage: UNK

REACTIONS (5)
  - Incorrect dose administered [Unknown]
  - Incorrect drug administration duration [Unknown]
  - Retching [Unknown]
  - Off label use [Unknown]
  - Wrong technique in product usage process [Unknown]
